FAERS Safety Report 12113794 (Version 2)
Quarter: 2017Q1

REPORT INFORMATION
  Report Type: Report from Study
  Country: US (occurrence: US)
  Receive Date: 20160225
  Receipt Date: 20170206
  Transmission Date: 20170428
  Serious: Yes (Hospitalization)
  Sender: FDA-Public Use
  Company Number: US-AMGEN-USASP2016020469

PATIENT
  Age: 77 Year
  Sex: Female
  Weight: 62.59 kg

DRUGS (1)
  1. PROCRIT [Suspect]
     Active Substance: ERYTHROPOIETIN
     Indication: PRODUCT USED FOR UNKNOWN INDICATION
     Dosage: 40,000 UNITS/ML, 6 VIALS ONCE MONTHLY
     Route: 065
     Dates: end: 201701

REACTIONS (3)
  - Unevaluable event [Unknown]
  - Living in residential institution [Not Recovered/Not Resolved]
  - Asthenia [Unknown]

NARRATIVE: CASE EVENT DATE: 20160129
